FAERS Safety Report 19087786 (Version 2)
Quarter: 2021Q2

REPORT INFORMATION
  Report Type: Spontaneous
  Country: US (occurrence: US)
  Receive Date: 20210402
  Receipt Date: 20210409
  Transmission Date: 20210717
  Serious: No
  Sender: FDA-Public Use
  Company Number: US-MYLANLABS-2021M1019807

PATIENT
  Age: 41 Year
  Sex: Female
  Weight: 68.04 kg

DRUGS (9)
  1. LIPITOR [Concomitant]
     Active Substance: ATORVASTATIN CALCIUM
     Indication: SCLERODERMA
     Dosage: 40 MILLIGRAM, QD
  2. SILDENAFIL. [Concomitant]
     Active Substance: SILDENAFIL
     Indication: SCLERODERMA
     Dosage: 20 MILLIGRAM, TID
  3. EPINEPHRINE. [Suspect]
     Active Substance: EPINEPHRINE
     Indication: ANAPHYLACTIC REACTION
     Dosage: UNK
     Dates: start: 20210321, end: 20210321
  4. CELLCEPT [Concomitant]
     Active Substance: MYCOPHENOLATE MOFETIL\MYCOPHENOLATE MOFETIL HYDROCHLORIDE
     Indication: SCLERODERMA
     Dosage: 1000 MILLIGRAM, BID
  5. NORVASC [Concomitant]
     Active Substance: AMLODIPINE BESYLATE
     Indication: SYSTEMIC SCLERODERMA
     Dosage: 5 MILLIGRAM, TID
  6. PREDNISONE. [Concomitant]
     Active Substance: PREDNISONE
     Indication: SCLERODERMA
     Dosage: 5 MILLIGRAM, QD
  7. GABAPENTIN. [Concomitant]
     Active Substance: GABAPENTIN
     Indication: SCLERODERMA
     Dosage: 300 MILLIGRAM, QD
  8. PROTONIX                           /00661201/ [Concomitant]
     Active Substance: OMEPRAZOLE
     Dosage: UNK
  9. PLAQUENIL                          /00072602/ [Concomitant]
     Active Substance: HYDROXYCHLOROQUINE DIPHOSPHATE
     Indication: SCLERODERMA
     Dosage: 200 MILLIGRAM, BID

REACTIONS (6)
  - Decreased appetite [Recovering/Resolving]
  - Body temperature increased [Unknown]
  - Feeling abnormal [Unknown]
  - Asthenia [Recovering/Resolving]
  - Asthma [Not Recovered/Not Resolved]
  - Fatigue [Unknown]

NARRATIVE: CASE EVENT DATE: 20210322
